FAERS Safety Report 14735499 (Version 1)
Quarter: 2018Q2

REPORT INFORMATION
  Report Type: Spontaneous
  Country: FR (occurrence: FR)
  Receive Date: 20180409
  Receipt Date: 20180409
  Transmission Date: 20180711
  Serious: Yes (Death, Hospitalization)
  Sender: FDA-Public Use
  Company Number: FR-JNJFOC-20180408282

PATIENT
  Age: 85 Year
  Sex: Male
  Weight: 90.5 kg

DRUGS (1)
  1. XARELTO [Suspect]
     Active Substance: RIVAROXABAN
     Indication: ATRIAL FIBRILLATION
     Route: 048

REACTIONS (4)
  - Intestinal ischaemia [Fatal]
  - Small intestinal resection [Fatal]
  - Arterial thrombosis [Fatal]
  - Intracardiac thrombus [Fatal]

NARRATIVE: CASE EVENT DATE: 20180322
